FAERS Safety Report 21814390 (Version 1)
Quarter: 2023Q1

REPORT INFORMATION
  Report Type: Spontaneous
  Country: US (occurrence: US)
  Receive Date: 20230104
  Receipt Date: 20230104
  Transmission Date: 20230417
  Serious: Yes (Other)
  Sender: FDA-Public Use
  Company Number: US-drreddys-LIT/USA/22/0159293

PATIENT

DRUGS (5)
  1. OMEPRAZOLE [Suspect]
     Active Substance: OMEPRAZOLE
     Indication: Cystic fibrosis
  2. ONDANSETRON [Suspect]
     Active Substance: ONDANSETRON
     Indication: Cystic fibrosis
  3. LANSOPRAZOLE [Suspect]
     Active Substance: LANSOPRAZOLE
     Indication: Cystic fibrosis
  4. ELEXACAFTOR\IVACAFTOR\TEZACAFTOR [Suspect]
     Active Substance: ELEXACAFTOR\IVACAFTOR\TEZACAFTOR
     Indication: Cystic fibrosis
  5. CLOFAZIMINE [Suspect]
     Active Substance: CLOFAZIMINE
     Indication: Cystic fibrosis

REACTIONS (3)
  - Drug-induced liver injury [Recovering/Resolving]
  - Drug interaction [Unknown]
  - Product use in unapproved indication [Unknown]
